FAERS Safety Report 6568251-8 (Version None)
Quarter: 2010Q1

REPORT INFORMATION
  Report Type: 
  Country: None (occurrence: None)
  Receive Date: 20100128
  Receipt Date: 20100115
  Transmission Date: 20100710
  Serious: Yes (Death, Hospitalization)
  Sender: FDA-Public Use
  Company Number: 483716

PATIENT
  Age: 48 Year
  Sex: Female
  Weight: 71.8 kg

DRUGS (2)
  1. CARBOPLATIN [Suspect]
     Indication: NON-SMALL CELL LUNG CANCER STAGE III
     Dosage: 655 MG, INTRAVENOUS
     Route: 042
     Dates: start: 20080414, end: 20080602
  2. NAVELBINE [Suspect]
     Indication: NON-SMALL CELL LUNG CANCER STAGE III
     Dosage: 25 MG/M2, INTRAVENOUS; 60 MG/M2 ORAL
     Route: 042
     Dates: start: 20080414, end: 20080609

REACTIONS (6)
  - DIARRHOEA [None]
  - HYPOTENSION [None]
  - NEUTROPENIC SEPSIS [None]
  - PLEURAL EFFUSION [None]
  - RENAL FAILURE [None]
  - RESPIRATORY FAILURE [None]
